FAERS Safety Report 9612563 (Version 2)
Quarter: 2013Q4

REPORT INFORMATION
  Report Type: Spontaneous
  Country: US (occurrence: None)
  Receive Date: 20131008
  Receipt Date: 20131021
  Transmission Date: 20140711
  Serious: Yes (Other)
  Sender: FDA-Public Use
  Company Number: KAD201309-001282

PATIENT
  Age: 56 Year
  Sex: Female

DRUGS (7)
  1. RIBAVIRIN [Suspect]
     Indication: CHRONIC HEPATITIS C
     Dosage: STOPPED
  2. PEGINTERFERON ALFA-2A [Suspect]
     Indication: CHRONIC HEPATITIS C
     Dosage: STOPPED
  3. TELAPREVIR [Suspect]
     Indication: CHRONIC HEPATITIS C
     Dosage: STOPPED
  4. METFORMIN (METFORMIN) [Concomitant]
  5. IBUPROFEN (IBUPROFEN) [Concomitant]
  6. MULTIVITAMIN (MULTIVITAMIN) [Concomitant]
  7. VITAMIN E SUPPLEMENTS (TOCOPHEROLS) [Concomitant]

REACTIONS (5)
  - Suicidal ideation [None]
  - Depression [None]
  - Fatigue [None]
  - Pancytopenia [None]
  - Scleritis [None]
